FAERS Safety Report 13572548 (Version 2)
Quarter: 2017Q3

REPORT INFORMATION
  Report Type: Spontaneous
  Country: US (occurrence: US)
  Receive Date: 20170523
  Receipt Date: 20170725
  Transmission Date: 20171127
  Serious: No
  Sender: FDA-Public Use
  Company Number: US-JNJFOC-20170426314

PATIENT
  Age: 51 Year
  Sex: Male

DRUGS (15)
  1. NORVASC [Concomitant]
     Active Substance: AMLODIPINE BESYLATE
  2. GLICLAZIDE [Concomitant]
     Active Substance: GLICLAZIDE
  3. MS CONTIN [Concomitant]
     Active Substance: MORPHINE SULFATE
  4. IMBRUVICA [Suspect]
     Active Substance: IBRUTINIB
     Indication: CHRONIC LYMPHOCYTIC LEUKAEMIA
     Route: 048
     Dates: start: 201409
  5. BENADRYL [Concomitant]
     Active Substance: DIPHENHYDRAMINE HYDROCHLORIDE
  6. POLYTRIM [Concomitant]
     Active Substance: POLYMYXIN B SULFATE\TRIMETHOPRIM SULFATE
  7. LIORESAL [Concomitant]
     Active Substance: BACLOFEN
  8. VASOTEC [Concomitant]
     Active Substance: ENALAPRIL MALEATE
  9. APAP [Concomitant]
     Active Substance: ACETAMINOPHEN
  10. IMBRUVICA [Suspect]
     Active Substance: IBRUTINIB
     Indication: CHRONIC LYMPHOCYTIC LEUKAEMIA
     Route: 048
     Dates: start: 20141023
  11. ATIVAN [Concomitant]
     Active Substance: LORAZEPAM
  12. DOXYLAMINE [Concomitant]
     Active Substance: DOXYLAMINE
  13. VIAGRA [Concomitant]
     Active Substance: SILDENAFIL CITRATE
  14. ROXICODONE [Concomitant]
     Active Substance: OXYCODONE HYDROCHLORIDE
  15. TYLENOL EXTRA STRENGTH [Concomitant]
     Active Substance: ACETAMINOPHEN

REACTIONS (1)
  - Drug dose omission [Unknown]

NARRATIVE: CASE EVENT DATE: 201704
